FAERS Safety Report 24783718 (Version 5)
Quarter: 2025Q1

REPORT INFORMATION
  Report Type: Spontaneous
  Country: CL (occurrence: CL)
  Receive Date: 20241227
  Receipt Date: 20250129
  Transmission Date: 20250409
  Serious: Yes (Other)
  Sender: BIOMARIN
  Company Number: CL-SA-2024SA374376

PATIENT

DRUGS (6)
  1. LARONIDASE [Suspect]
     Active Substance: LARONIDASE
     Indication: Mucopolysaccharidosis I
     Dosage: 26.1 MG (3 DF OF 8.7 MG), QW
     Route: 042
  2. LARONIDASE [Suspect]
     Active Substance: LARONIDASE
     Dosage: 26.1 MG (3 DF OF 8.7 MG), QW
     Route: 042
  3. CHLORPHENIRAMINE MALEATE [Concomitant]
     Active Substance: CHLORPHENIRAMINE MALEATE
     Indication: Premedication
     Dosage: 2 MG, QW
     Dates: start: 20241220
  4. BETAMETHASONE [Concomitant]
     Active Substance: BETAMETHASONE
     Indication: Premedication
     Dates: start: 20241220
  5. BETAMETHASONE [Concomitant]
     Active Substance: BETAMETHASONE
     Dosage: QW
     Dates: start: 20241220
  6. SPEL [Concomitant]

REACTIONS (6)
  - Pneumonia [Recovered/Resolved]
  - Skin lesion [Recovered/Resolved]
  - Urticaria [Recovered/Resolved]
  - Acne [Recovering/Resolving]
  - Rash erythematous [Recovered/Resolved]
  - Erythema [Recovering/Resolving]

NARRATIVE: CASE EVENT DATE: 20241212
